FAERS Safety Report 9149745 (Version 1)
Quarter: 2013Q1

REPORT INFORMATION
  Report Type: Spontaneous
  Country: US (occurrence: US)
  Receive Date: 20130308
  Receipt Date: 20130308
  Transmission Date: 20140127
  Serious: No
  Sender: FDA-Public Use
  Company Number: US-ENDO PHARMACEUTICALS INC.-OPCR20120504

PATIENT
  Sex: Male

DRUGS (5)
  1. OPANA ER 20MG [Suspect]
     Indication: NEURALGIA
     Route: 048
     Dates: start: 201204
  2. OPANA ER 20MG [Suspect]
     Indication: BACK PAIN
  3. PERCOCET [Concomitant]
     Indication: BREAKTHROUGH PAIN
     Dosage: 40/1300 MG
     Route: 048
  4. OXYCONTIN [Concomitant]
     Indication: NEURALGIA
     Dosage: UNKNOWN
     Route: 065
     Dates: end: 201204
  5. OXYCONTIN [Concomitant]
     Indication: BACK PAIN

REACTIONS (2)
  - Medication residue present [Not Recovered/Not Resolved]
  - Drug effect decreased [Not Recovered/Not Resolved]
